FAERS Safety Report 4956833-6 (Version None)
Quarter: 2006Q1

REPORT INFORMATION
  Report Type: 
  Country: None (occurrence: None)
  Receive Date: 20060323
  Receipt Date: 20060314
  Transmission Date: 20060701
  Serious: Yes (Death, Hospitalization, Other)
  Sender: FDA-Public Use
  Company Number: JP200512001426

PATIENT
  Age: 75 Year
  Sex: Male
  Weight: 40 kg

DRUGS (6)
  1. ZYPREXA [Suspect]
     Indication: SCHIZOPHRENIA
     Dosage: 5 MG, DAILY (1/D), ORAL
     Route: 048
     Dates: start: 20050928, end: 20050929
  2. ACTIT (MAGNESIUM CHLORIDE ANHYDROUS, MALTOSE, POTASSIUM CHLORIDE, POTA [Concomitant]
  3. VITAMIN B 1-6-12 (CYANOCOBALAMIN, PYRIDOXINE HYDROCHLORIDE, THIAMINE H [Concomitant]
  4. ASCORBIC ACID [Concomitant]
  5. AMINOFLUID (AMINO ACIDS NOS, ELECTROLYTES NOS, GLUCOSE) VIAL, 100 ML [Concomitant]
  6. RISPERIDONE (RISPERIDONE), 1 ML [Concomitant]

REACTIONS (2)
  - BLOOD UREA INCREASED [None]
  - HEPATIC FAILURE [None]
